FAERS Safety Report 20451906 (Version 1)
Quarter: 2022Q1

REPORT INFORMATION
  Report Type: Spontaneous
  Country: JP (occurrence: JP)
  Receive Date: 20220209
  Receipt Date: 20220209
  Transmission Date: 20220423
  Serious: Yes (Death, Other)
  Sender: FDA-Public Use
  Company Number: JP-SA-2022SA040863

PATIENT
  Age: 50 Year
  Sex: Female

DRUGS (1)
  1. LANTUS SOLOSTAR [Suspect]
     Active Substance: INSULIN GLARGINE
     Indication: Drug abuse
     Route: 058

REACTIONS (7)
  - Brain oedema [Fatal]
  - Hypoglycaemic coma [Unknown]
  - Loss of consciousness [Unknown]
  - Vomiting [Unknown]
  - Hypoglycaemia [Recovering/Resolving]
  - Cold sweat [Recovering/Resolving]
  - Drug abuse [Recovering/Resolving]
